FAERS Safety Report 19573709 (Version 2)
Quarter: 2022Q2

REPORT INFORMATION
  Report Type: Report from Study
  Country: DE (occurrence: DE)
  Receive Date: 20210717
  Receipt Date: 20220526
  Transmission Date: 20220721
  Serious: Yes (Hospitalization, Other)
  Sender: FDA-Public Use
  Company Number: DE-TAKEDA-2021TUS041535

PATIENT
  Age: 64 Year
  Sex: Male

DRUGS (16)
  1. TEDUGLUTIDE [Suspect]
     Active Substance: TEDUGLUTIDE
     Indication: Short-bowel syndrome
     Dosage: 3.65 MILLIGRAM, QD
     Route: 042
     Dates: start: 20180131, end: 20180718
  2. TEDUGLUTIDE [Suspect]
     Active Substance: TEDUGLUTIDE
     Indication: Short-bowel syndrome
     Dosage: 3.65 MILLIGRAM, QD
     Route: 042
     Dates: start: 20180131, end: 20180718
  3. TEDUGLUTIDE [Suspect]
     Active Substance: TEDUGLUTIDE
     Indication: Short-bowel syndrome
     Dosage: 3.65 MILLIGRAM, QD
     Route: 042
     Dates: start: 20180131, end: 20180718
  4. TEDUGLUTIDE [Suspect]
     Active Substance: TEDUGLUTIDE
     Indication: Short-bowel syndrome
     Dosage: 3.65 MILLIGRAM, QD
     Route: 042
     Dates: start: 20180131, end: 20180718
  5. TEDUGLUTIDE [Suspect]
     Active Substance: TEDUGLUTIDE
     Dosage: 3.75 MILLIGRAM, QD
     Route: 042
     Dates: start: 20180718, end: 201809
  6. TEDUGLUTIDE [Suspect]
     Active Substance: TEDUGLUTIDE
     Dosage: 3.75 MILLIGRAM, QD
     Route: 042
     Dates: start: 20180718, end: 201809
  7. TEDUGLUTIDE [Suspect]
     Active Substance: TEDUGLUTIDE
     Dosage: 3.75 MILLIGRAM, QD
     Route: 042
     Dates: start: 20180718, end: 201809
  8. TEDUGLUTIDE [Suspect]
     Active Substance: TEDUGLUTIDE
     Dosage: 3.75 MILLIGRAM, QD
     Route: 042
     Dates: start: 20180718, end: 201809
  9. TEDUGLUTIDE [Suspect]
     Active Substance: TEDUGLUTIDE
     Dosage: 3.55 MILLIGRAM, QD
     Route: 042
     Dates: start: 20190228, end: 201908
  10. TEDUGLUTIDE [Suspect]
     Active Substance: TEDUGLUTIDE
     Dosage: 3.55 MILLIGRAM, QD
     Route: 042
     Dates: start: 20190228, end: 201908
  11. TEDUGLUTIDE [Suspect]
     Active Substance: TEDUGLUTIDE
     Dosage: 3.55 MILLIGRAM, QD
     Route: 042
     Dates: start: 20190228, end: 201908
  12. TEDUGLUTIDE [Suspect]
     Active Substance: TEDUGLUTIDE
     Dosage: 3.55 MILLIGRAM, QD
     Route: 042
     Dates: start: 20190228, end: 201908
  13. ERYTHROPOIETIN [Concomitant]
     Active Substance: ERYTHROPOIETIN
     Indication: Nephrogenic anaemia
     Dosage: UNK UNK, 1/WEEK
     Route: 058
     Dates: start: 20200605
  14. FOLIC ACID [Concomitant]
     Active Substance: FOLIC ACID
     Indication: Nephrogenic anaemia
     Dosage: 5 MILLIGRAM, QD
     Route: 048
     Dates: start: 20200605
  15. FERROUS GLYCINE SULFATE [Concomitant]
     Active Substance: FERROUS GLYCINE SULFATE
     Indication: Nephrogenic anaemia
     Dosage: 100 MILLIGRAM, QD
     Route: 048
     Dates: start: 20200605
  16. VITAMIN B12 [Concomitant]
     Active Substance: CYANOCOBALAMIN
     Indication: Vitamin B12 deficiency
     Dosage: 1000 MILLIGRAM, QD
     Route: 048
     Dates: start: 20200605

REACTIONS (3)
  - Acute kidney injury [Recovered/Resolved]
  - Gastritis [Recovered/Resolved]
  - Gastrooesophageal reflux disease [Not Recovered/Not Resolved]

NARRATIVE: CASE EVENT DATE: 20210125
